FAERS Safety Report 15864200 (Version 3)
Quarter: 2019Q1

REPORT INFORMATION
  Report Type: Report from Study
  Country: US (occurrence: US)
  Receive Date: 20190124
  Receipt Date: 20190219
  Transmission Date: 20190417
  Serious: Yes (Disabling, Other)
  Sender: FDA-Public Use
  Company Number: US-GILEAD-2019-0385693

PATIENT
  Age: 57 Year
  Sex: Male

DRUGS (3)
  1. RITUXAN [Concomitant]
     Active Substance: RITUXIMAB
     Dosage: NOT PROVIDED, INTRAVENOUS INFUSION
     Dates: start: 201701, end: 201809
  2. IDELALISIB [Suspect]
     Active Substance: IDELALISIB
     Indication: NON-HODGKIN^S LYMPHOMA RECURRENT
     Dosage: 150 MG, BID
     Route: 048
     Dates: start: 20180102, end: 20180214
  3. OXYCODONE [Concomitant]
     Active Substance: OXYCODONE
     Dosage: 5MG, TWO TABLETS BY MOUTH EVERY 6 HOURS AS NEEDED

REACTIONS (12)
  - Musculoskeletal chest pain [Not Recovered/Not Resolved]
  - Product dose omission [Unknown]
  - Radiotherapy [Not Recovered/Not Resolved]
  - Spinal cord neoplasm [Not Recovered/Not Resolved]
  - Drug tolerance [Not Recovered/Not Resolved]
  - Limb mass [Unknown]
  - Fatigue [Not Recovered/Not Resolved]
  - Nausea [Not Recovered/Not Resolved]
  - Lymphoma transformation [Unknown]
  - Chemotherapy [Not Recovered/Not Resolved]
  - Drug ineffective [Not Recovered/Not Resolved]
  - Musculoskeletal pain [Not Recovered/Not Resolved]

NARRATIVE: CASE EVENT DATE: 20180102
